FAERS Safety Report 11706049 (Version 1)
Quarter: 2015Q4

REPORT INFORMATION
  Report Type: Spontaneous
  Country: US (occurrence: US)
  Receive Date: 20151106
  Receipt Date: 20151106
  Transmission Date: 20160304
  Serious: Yes (Other)
  Sender: FDA-Public Use
  Company Number: US-PFIZER INC-2015378063

PATIENT
  Age: 60 Year
  Sex: Male
  Weight: 100 kg

DRUGS (14)
  1. EFFEXOR XR [Suspect]
     Active Substance: VENLAFAXINE HYDROCHLORIDE
     Indication: ANXIETY
     Dosage: 225 MG, DAILY
  2. JANUMET [Concomitant]
     Active Substance: METFORMIN HYDROCHLORIDE\SITAGLIPTIN PHOSPHATE
     Dosage: 2 DF, 1X/DAY, [SITAGLIPTIN PHOSPHATE MONOHYDRATE 50 MG]/[METFORMIN HYDROCHLORIDE 1000 MG]
  3. TESTOSTERONE. [Concomitant]
     Active Substance: TESTOSTERONE
     Dosage: ONE SPRAY, DAILY
  4. BUPROPRION XL [Concomitant]
     Active Substance: BUPROPION
     Dosage: 100 MG, DAILY
  5. SYNTHROID [Concomitant]
     Active Substance: LEVOTHYROXINE SODIUM
     Dosage: 175 ?G, DAILY
     Route: 048
  6. EFFEXOR XR [Suspect]
     Active Substance: VENLAFAXINE HYDROCHLORIDE
     Indication: DEPRESSION
     Dosage: 150 MG, 2X/DAY
  7. RAPAFLO [Concomitant]
     Active Substance: SILODOSIN
     Dosage: 4 MG, 1X/DAY, IN THE EVENING
     Route: 048
  8. EFFEXOR XR [Suspect]
     Active Substance: VENLAFAXINE HYDROCHLORIDE
     Dosage: 300 MG, DAILY
  9. VITAMIN D [Concomitant]
     Active Substance: CHOLECALCIFEROL
     Dosage: 4000 IU, DAILY
  10. AMARYL [Concomitant]
     Active Substance: GLIMEPIRIDE
     Dosage: 4 MG, 2X/DAY
  11. CRESTOR [Concomitant]
     Active Substance: ROSUVASTATIN CALCIUM
     Dosage: 10 MG, DAILY
  12. KLONOPIN [Concomitant]
     Active Substance: CLONAZEPAM
     Dosage: 0.75 MG, 1X/DAY, IN THE EVENING
     Route: 048
  13. LOVAZA [Concomitant]
     Active Substance: OMEGA-3-ACID ETHYL ESTERS
     Dosage: 4000 MG, DAILY
  14. METOPROLOL [Concomitant]
     Active Substance: METOPROLOL
     Dosage: 100 MG, DAILY

REACTIONS (5)
  - Drug ineffective [Unknown]
  - Anorgasmia [Not Recovered/Not Resolved]
  - Erectile dysfunction [Not Recovered/Not Resolved]
  - Parkinson^s disease [Unknown]
  - Tremor [Unknown]

NARRATIVE: CASE EVENT DATE: 2014
